FAERS Safety Report 7428730-8 (Version None)
Quarter: 2011Q2

REPORT INFORMATION
  Report Type: 
  Country: None (occurrence: None)
  Receive Date: 20110421
  Receipt Date: 20110413
  Transmission Date: 20111010
  Serious: Yes (Hospitalization, Other)
  Sender: FDA-Public Use
  Company Number: US-ASTRAZENECA-2009UW21574

PATIENT
  Age: 55 Year
  Sex: Male

DRUGS (9)
  1. PROPRANOLOL [Concomitant]
     Dosage: 10 MG OD PRN, 10 MG TID, 10 MG BID
     Dates: start: 20060101
  2. SEROQUEL [Suspect]
     Route: 048
     Dates: start: 20030101
  3. HYDROCODONE BITARTRATE AND ACETAMINOPHEN [Concomitant]
     Indication: PAIN
     Dosage: 5/500 MG TAKE 1 TABLET EVERY 4 TO 6 HOURS AS NEEDED
     Dates: start: 20050101
  4. SEROQUEL [Suspect]
     Dosage: 25 TO 200 MG
     Route: 048
     Dates: start: 20050130
  5. PAXIL CR [Concomitant]
     Dates: start: 20060101
  6. WELLBUTRIN XL [Concomitant]
     Dosage: 150 MG II AM
     Dates: start: 20070101
  7. PROZAC [Concomitant]
  8. XANAX [Concomitant]
  9. BUSPAR [Concomitant]
     Dates: start: 20070101

REACTIONS (2)
  - GALLBLADDER DISORDER [None]
  - PANCREATITIS [None]
